FAERS Safety Report 12298839 (Version 1)
Quarter: 2016Q2

REPORT INFORMATION
  Report Type: Spontaneous
  Country: US (occurrence: None)
  Receive Date: 20160422
  Receipt Date: 20160422
  Transmission Date: 20160815
  Serious: Yes (Disabling)
  Sender: FDA-Public Use
  Company Number: None

PATIENT
  Age: 55 Year
  Sex: Female
  Weight: 58.06 kg

DRUGS (2)
  1. HARVONI [Suspect]
     Active Substance: LEDIPASVIR\SOFOSBUVIR
     Indication: HEPATITIS C
     Dosage: 90MG/400MG  28 1 A DAY MOUTH
     Route: 048
     Dates: start: 20151007, end: 20151202
  2. NAPROXEN. [Concomitant]
     Active Substance: NAPROXEN

REACTIONS (5)
  - Fall [None]
  - Pain [None]
  - Abasia [None]
  - Hemiparesis [None]
  - Asthenia [None]

NARRATIVE: CASE EVENT DATE: 201511
